FAERS Safety Report 20787635 (Version 1)
Quarter: 2022Q2

REPORT INFORMATION
  Report Type: Spontaneous
  Country: AR (occurrence: AR)
  Receive Date: 20220505
  Receipt Date: 20220505
  Transmission Date: 20220721
  Serious: Yes (Hospitalization, Other)
  Sender: FDA-Public Use
  Company Number: AR-SUN PHARMACEUTICAL INDUSTRIES LTD-2022R1-334717

PATIENT
  Age: 43 Year
  Sex: Male

DRUGS (1)
  1. AMPHOTERICIN B [Suspect]
     Active Substance: AMPHOTERICIN B
     Indication: Paracoccidioides infection
     Dosage: 3 MILLIGRAM/KILOGRAM, QD
     Route: 042

REACTIONS (2)
  - Therapy non-responder [Unknown]
  - Disease progression [Unknown]
